FAERS Safety Report 25238592 (Version 1)
Quarter: 2025Q2

REPORT INFORMATION
  Report Type: Report from Study
  Country: US (occurrence: US)
  Receive Date: 20250425
  Receipt Date: 20250425
  Transmission Date: 20250716
  Serious: Yes (Other)
  Sender: ROCHE
  Company Number: US-ROCHE-10000266423

PATIENT

DRUGS (4)
  1. DORNASE ALFA [Suspect]
     Active Substance: DORNASE ALFA
     Indication: Empyema
     Route: 034
  2. DORNASE ALFA [Suspect]
     Active Substance: DORNASE ALFA
     Indication: Pleural infection
  3. ALTEPLASE [Suspect]
     Active Substance: ALTEPLASE
     Indication: Empyema
     Route: 034
  4. ALTEPLASE [Suspect]
     Active Substance: ALTEPLASE
     Indication: Pleural infection

REACTIONS (3)
  - Spinal cord haemorrhage [Unknown]
  - Retroperitoneal haemorrhage [Unknown]
  - Treatment failure [Unknown]
